FAERS Safety Report 8321667-1 (Version None)
Quarter: 2012Q2

REPORT INFORMATION
  Report Type: 
  Country: None (occurrence: None)
  Receive Date: 20120430
  Receipt Date: 20120423
  Transmission Date: 20120825
  Serious: Yes (Other)
  Sender: FDA-Public Use
  Company Number: PHEH2012US007529

PATIENT
  Sex: Female

DRUGS (6)
  1. AFINITOR [Suspect]
     Indication: METASTATIC CARCINOID TUMOUR
     Dosage: 10 MG, QOD
     Route: 048
     Dates: start: 20110731, end: 20120401
  2. ZOCOR [Concomitant]
     Indication: HYPERLIPIDAEMIA
     Dosage: 40 MG, QD
     Route: 048
  3. WARFARIN SODIUM [Concomitant]
     Indication: DEEP VEIN THROMBOSIS
     Dosage: 3 MG, QD
     Route: 048
  4. METOPROLOL TARTRATE [Concomitant]
     Indication: HYPERTENSION
     Dosage: 50 MG, QD
     Route: 048
  5. SYNTHROID [Concomitant]
     Indication: HYPOTHYROIDISM
     Dosage: 117 UG, QD
     Route: 048
  6. FENOFIBRATE [Concomitant]
     Indication: HYPERLIPIDAEMIA
     Dosage: 54 MG, QD
     Route: 048

REACTIONS (5)
  - RESTRICTIVE PULMONARY DISEASE [None]
  - INTERSTITIAL LUNG DISEASE [None]
  - DYSPNOEA [None]
  - LUNG DISORDER [None]
  - COUGH [None]
